FAERS Safety Report 6486775-9 (Version None)
Quarter: 2009Q4

REPORT INFORMATION
  Report Type: 
  Country: None (occurrence: None)
  Receive Date: 20091123
  Receipt Date: 20090911
  Transmission Date: 20100525
  Serious: No
  Sender: FDA-Public Use
  Company Number: 8052006

PATIENT
  Age: 47 Year
  Sex: Female

DRUGS (5)
  1. CIMZIA [Suspect]
     Indication: CROHN'S DISEASE
     Dosage: 400 MG SC
     Route: 058
     Dates: start: 20081020
  2. ENTOCORT EC [Concomitant]
  3. FISH OIL [Concomitant]
  4. MULTI-VITAMINS [Concomitant]
  5. CALTRATE + D [Concomitant]

REACTIONS (4)
  - CHILLS [None]
  - INFLUENZA LIKE ILLNESS [None]
  - OEDEMA PERIPHERAL [None]
  - PYREXIA [None]
